FAERS Safety Report 24832100 (Version 1)
Quarter: 2025Q1

REPORT INFORMATION
  Report Type: Spontaneous
  Country: US (occurrence: None)
  Receive Date: 20250110
  Receipt Date: 20250110
  Transmission Date: 20250409
  Serious: Yes (Hospitalization)
  Sender: FDA-CTU
  Company Number: None

PATIENT
  Age: 61 Year
  Sex: Male
  Weight: 82.55 kg

DRUGS (11)
  1. LUPRON DEPOT [Suspect]
     Active Substance: LEUPROLIDE ACETATE
     Indication: Prostate cancer
     Route: 058
     Dates: start: 202103, end: 20221230
  2. Esictalpram [Concomitant]
  3. Trazadonc [Concomitant]
  4. Clonaphasm [Concomitant]
  5. Eliquos [Concomitant]
  6. HERBALS\TURMERIC [Concomitant]
     Active Substance: HERBALS\TURMERIC
  7. Vitamin C + D [Concomitant]
  8. Glucosimin [Concomitant]
  9. FISH OIL [Concomitant]
     Active Substance: FISH OIL
  10. Magesium [Concomitant]
  11. PROBIOTICS NOS [Concomitant]
     Active Substance: PROBIOTICS NOS

REACTIONS (13)
  - Sepsis [None]
  - Gait disturbance [None]
  - Peripheral nerve injury [None]
  - Neuralgia [None]
  - Diarrhoea [None]
  - Depression [None]
  - Skin disorder [None]
  - Contusion [None]
  - Dyspepsia [None]
  - Vision blurred [None]
  - Headache [None]
  - Apathy [None]
  - Photosensitivity reaction [None]

NARRATIVE: CASE EVENT DATE: 20210315
